FAERS Safety Report 7860947-0 (Version None)
Quarter: 2011Q4

REPORT INFORMATION
  Report Type: 
  Country: None (occurrence: None)
  Receive Date: 20111027
  Receipt Date: 20111003
  Transmission Date: 20120403
  Serious: Yes (Hospitalization)
  Sender: FDA-Public Use
  Company Number: JP-EISAI INC-E7389-01524-SPO-JP

PATIENT
  Age: 51 Year

DRUGS (2)
  1. DECADRON [Suspect]
     Dates: end: 20110906
  2. HALAVEN [Suspect]
     Route: 041
     Dates: start: 20110805

REACTIONS (2)
  - HYPERGLYCAEMIA [None]
  - GAIT DISTURBANCE [None]
